FAERS Safety Report 26203194 (Version 1)
Quarter: 2025Q4

REPORT INFORMATION
  Report Type: Report from Study
  Country: IN (occurrence: IN)
  Receive Date: 20251226
  Receipt Date: 20251226
  Transmission Date: 20260118
  Serious: Yes (Hospitalization, Other)
  Sender: ALEXION PHARMACEUTICALS
  Company Number: IN-AstraZeneca-CH-01018147A

PATIENT
  Age: 83 Year
  Sex: Female
  Weight: 54.9 kg

DRUGS (1)
  1. OSIMERTINIB [Suspect]
     Active Substance: OSIMERTINIB
     Indication: Non-small cell lung cancer metastatic
     Dosage: 80 MILLIGRAM, QD
     Route: 061

REACTIONS (9)
  - Blood pressure increased [Unknown]
  - Cardiac failure [Unknown]
  - Hyperkalaemia [Unknown]
  - Fluid retention [Unknown]
  - Back pain [Unknown]
  - Oedema [Unknown]
  - Hyponatraemia [Unknown]
  - Therapy interrupted [Unknown]
  - Therapy cessation [Unknown]

NARRATIVE: CASE EVENT DATE: 20251125
